FAERS Safety Report 20488346 (Version 4)
Quarter: 2022Q3

REPORT INFORMATION
  Report Type: Spontaneous
  Country: GB (occurrence: GB)
  Receive Date: 20220218
  Receipt Date: 20220825
  Transmission Date: 20221027
  Serious: Yes (Hospitalization, Other)
  Sender: FDA-Public Use
  Company Number: GB-SA-SAC20220214000694

PATIENT
  Sex: Female

DRUGS (3)
  1. AUBAGIO [Suspect]
     Active Substance: TERIFLUNOMIDE
     Indication: Relapsing-remitting multiple sclerosis
     Dosage: 14 MG, QD
     Route: 048
     Dates: start: 202109
  2. AUBAGIO [Suspect]
     Active Substance: TERIFLUNOMIDE
     Dosage: 14 MG, QD
     Route: 048
     Dates: start: 20211105, end: 20220307
  3. TECFIDERA [Concomitant]
     Active Substance: DIMETHYL FUMARATE
     Dosage: UNK

REACTIONS (16)
  - Gastrointestinal infection [Unknown]
  - Kidney infection [Unknown]
  - Large intestine infection [Unknown]
  - Abdominal pain [Unknown]
  - Diarrhoea [Unknown]
  - Alopecia [Unknown]
  - Nausea [Unknown]
  - Infection [Unknown]
  - Immunodeficiency [Unknown]
  - Sepsis [Unknown]
  - Vomiting [Unknown]
  - Gait disturbance [Unknown]
  - Gamma-glutamyltransferase increased [Recovered/Resolved]
  - Haematocrit decreased [Recovered/Resolved]
  - Eosinophil count decreased [Recovered/Resolved]
  - Drug ineffective [Unknown]

NARRATIVE: CASE EVENT DATE: 20220201
